FAERS Safety Report 20173595 (Version 2)
Quarter: 2021Q4

REPORT INFORMATION
  Report Type: Spontaneous
  Country: JP (occurrence: JP)
  Receive Date: 20211212
  Receipt Date: 20211223
  Transmission Date: 20220304
  Serious: Yes (Hospitalization)
  Sender: FDA-Public Use
  Company Number: JP-KYOWAKIRIN-2021AKK020555

PATIENT
  Age: 79 Year
  Sex: Male

DRUGS (8)
  1. PEGFILGRASTIM [Suspect]
     Active Substance: PEGFILGRASTIM
     Indication: Colony stimulating factor therapy
     Dosage: UNK (2ND COURSE)
     Route: 058
     Dates: start: 20211120
  2. CARBOPLATIN [Concomitant]
     Active Substance: CARBOPLATIN
     Indication: Small cell lung cancer
     Dosage: AUC 5
     Route: 041
     Dates: start: 20211116, end: 20211116
  3. CARBOPLATIN [Concomitant]
     Active Substance: CARBOPLATIN
     Dosage: AUC 5
     Route: 041
     Dates: start: 20211026, end: 20211026
  4. ETOPOSIDE [Concomitant]
     Active Substance: ETOPOSIDE
     Indication: Small cell lung cancer
     Dosage: 100 MG/M2
     Route: 041
     Dates: start: 20211116, end: 20211118
  5. ETOPOSIDE [Concomitant]
     Active Substance: ETOPOSIDE
     Dosage: 100 MG/M2
     Route: 041
     Dates: start: 20211026, end: 20211028
  6. DURVALUMAB [Concomitant]
     Active Substance: DURVALUMAB
     Indication: Small cell lung cancer
     Dosage: 1500 MG/M2
     Route: 041
     Dates: start: 20211116, end: 20211116
  7. DURVALUMAB [Concomitant]
     Active Substance: DURVALUMAB
     Dosage: 1500 MG/M2
     Route: 041
     Dates: start: 20211026, end: 20211026
  8. LINAGLIPTIN [Concomitant]
     Active Substance: LINAGLIPTIN
     Indication: Diabetes mellitus
     Dosage: 5 MG
     Route: 048

REACTIONS (1)
  - Pyrexia [Recovered/Resolved]
